FAERS Safety Report 9767093 (Version 2)
Quarter: 2014Q4

REPORT INFORMATION
  Report Type: Spontaneous
  Country: US (occurrence: US)
  Receive Date: 20131217
  Receipt Date: 20141217
  Transmission Date: 20150529
  Serious: No
  Sender: FDA-Public Use
  Company Number: US-GLAXOSMITHKLINE-A1039216A

PATIENT
  Sex: Female

DRUGS (2)
  1. VOTRIENT [Suspect]
     Active Substance: PAZOPANIB HYDROCHLORIDE
  2. VOTRIENT [Suspect]
     Active Substance: PAZOPANIB HYDROCHLORIDE
     Indication: RENAL CANCER
     Dosage: INITIATED AT (4) 200 MG TABLETS AT 800 MG, INTERRUPTED FOR UNSPECIFED EVENT THEN RESTARTED AT 4[...]
     Route: 048

REACTIONS (4)
  - Adverse event [Unknown]
  - Protein urine present [Unknown]
  - Palmar-plantar erythrodysaesthesia syndrome [Unknown]
  - Insomnia [Not Recovered/Not Resolved]
